FAERS Safety Report 7859118-3 (Version None)
Quarter: 2011Q4

REPORT INFORMATION
  Report Type: 
  Country: None (occurrence: None)
  Receive Date: 20111027
  Receipt Date: 20111019
  Transmission Date: 20120403
  Serious: Yes (Other)
  Sender: FDA-Public Use
  Company Number: PHHY2011CA93420

PATIENT

DRUGS (1)
  1. GLEEVEC [Suspect]
     Route: 048

REACTIONS (1)
  - CARDIAC DISORDER [None]
